FAERS Safety Report 25659566 (Version 1)
Quarter: 2025Q3

REPORT INFORMATION
  Report Type: Spontaneous
  Country: EU (occurrence: EU)
  Receive Date: 20250808
  Receipt Date: 20250808
  Transmission Date: 20251020
  Serious: Yes (Other)
  Sender: AUROBINDO
  Company Number: EU-MENARINI-IT-MEN-083250

PATIENT
  Age: 64 Year
  Sex: Male

DRUGS (6)
  1. ATORVASTATIN [Suspect]
     Active Substance: ATORVASTATIN
     Indication: Myocardial infarction
     Dosage: 20 MILLIGRAM, ONCE A DAY
     Route: 065
  2. ATORVASTATIN [Suspect]
     Active Substance: ATORVASTATIN
     Dosage: 80 MILLIGRAM, ONCE A DAY
     Route: 065
  3. TICAGRELOR [Suspect]
     Active Substance: TICAGRELOR
     Indication: Acute myocardial infarction
     Dosage: 180 MILLIGRAM, ONCE A DAY
     Route: 065
  4. ASPIRIN [Concomitant]
     Active Substance: ASPIRIN
     Indication: Acute myocardial infarction
     Dosage: 100 MILLIGRAM, ONCE A DAY
     Route: 065
  5. COBICISTAT\DARUNAVIR ETHANOLATE [Concomitant]
     Active Substance: COBICISTAT\DARUNAVIR ETHANOLATE
     Indication: HIV infection
     Route: 065
  6. RILPIVIRINE [Concomitant]
     Active Substance: RILPIVIRINE
     Indication: HIV infection
     Route: 065

REACTIONS (4)
  - Product use in unapproved indication [Not Recovered/Not Resolved]
  - Drug interaction [Recovered/Resolved]
  - Off label use [Not Recovered/Not Resolved]
  - No adverse event [Not Recovered/Not Resolved]
